FAERS Safety Report 18265883 (Version 2)
Quarter: 2021Q1

REPORT INFORMATION
  Report Type: Spontaneous
  Country: PT (occurrence: PT)
  Receive Date: 20200915
  Receipt Date: 20210221
  Transmission Date: 20210419
  Serious: Yes (Other)
  Sender: FDA-Public Use
  Company Number: PT-BIOGEN-2020BI00921906

PATIENT
  Sex: Male

DRUGS (3)
  1. TECFIDERA [Suspect]
     Active Substance: DIMETHYL FUMARATE
     Indication: MULTIPLE SCLEROSIS
     Dosage: MAINTENANCE DOSE
     Route: 048
  2. MOLINAR [Concomitant]
     Indication: PRODUCT USED FOR UNKNOWN INDICATION
     Route: 065
  3. VICTAN [Concomitant]
     Active Substance: ETHYL LOFLAZEPATE
     Indication: PRODUCT USED FOR UNKNOWN INDICATION
     Route: 065

REACTIONS (3)
  - Barrett^s oesophagus [Not Recovered/Not Resolved]
  - Intestinal metaplasia [Not Recovered/Not Resolved]
  - Barrett^s oesophagus [Unknown]

NARRATIVE: CASE EVENT DATE: 2020
